FAERS Safety Report 6058656-6 (Version None)
Quarter: 2009Q1

REPORT INFORMATION
  Report Type: 
  Country: None (occurrence: None)
  Receive Date: 20090130
  Receipt Date: 20090120
  Transmission Date: 20090719
  Serious: Yes (Disabling)
  Sender: FDA-Public Use
  Company Number: CA-PFIZER INC-2009160427

PATIENT

DRUGS (4)
  1. EXEMESTANE [Suspect]
     Indication: BREAST CANCER
     Dosage: 25 MG, 1X/DAY
     Dates: start: 20050727
  2. ACTONEL [Concomitant]
  3. CIPROFLOXACIN [Concomitant]
  4. SYNTHROID [Concomitant]

REACTIONS (1)
  - VAGINAL STRICTURE [None]
